FAERS Safety Report 7465296-0 (Version None)
Quarter: 2011Q2

REPORT INFORMATION
  Report Type: 
  Country: None (occurrence: None)
  Receive Date: 20110509
  Receipt Date: 20110412
  Transmission Date: 20111010
  Serious: Yes (Hospitalization)
  Sender: FDA-Public Use
  Company Number: US-BAYER-201036553NA

PATIENT
  Age: 41 Year
  Sex: Female

DRUGS (4)
  1. YASMIN [Suspect]
     Indication: MENSTRUATION IRREGULAR
  2. ACETAMINOPHEN [Concomitant]
     Indication: OVARIAN CYST
  3. VICODIN [Concomitant]
     Indication: OVARIAN CYST
  4. YASMIN [Suspect]
     Indication: OVARIAN CYST
     Dates: start: 20031101, end: 20031201

REACTIONS (1)
  - PULMONARY EMBOLISM [None]
